FAERS Safety Report 5721036-4 (Version None)
Quarter: 2008Q2

REPORT INFORMATION
  Report Type: 
  Country: None (occurrence: None)
  Receive Date: 20080429
  Receipt Date: 20080418
  Transmission Date: 20081010
  Serious: Yes (Death)
  Sender: FDA-Public Use
  Company Number: US-WYE-H03684308

PATIENT
  Age: 16 Year
  Sex: Male

DRUGS (3)
  1. EFFEXOR XR [Suspect]
     Indication: DEPRESSION
     Dosage: UNKNOWN
  2. EFFEXOR XR [Suspect]
     Indication: BIPOLAR DISORDER
  3. EFFEXOR XR [Suspect]
     Indication: ASPERGER'S DISORDER

REACTIONS (2)
  - ASPHYXIA [None]
  - COMPLETED SUICIDE [None]
